FAERS Safety Report 8560807-6 (Version None)
Quarter: 2012Q3

REPORT INFORMATION
  Report Type: 
  Country: None (occurrence: None)
  Receive Date: 20120727
  Receipt Date: 20120727
  Transmission Date: 20120928
  Serious: Yes (Hospitalization)
  Sender: FDA-Public Use
  Company Number: None

PATIENT
  Age: 87 Year
  Sex: Male
  Weight: 81 kg

DRUGS (14)
  1. ACIPHEX [Concomitant]
  2. GLIMEPIRIDE [Suspect]
     Indication: TYPE 2 DIABETES MELLITUS
     Dosage: 2MG DAILY PO CHRONIC
     Route: 048
  3. PROVENTIL [Concomitant]
  4. LUTEIN [Concomitant]
  5. METFORMIN HYDROCHLORIDE [Concomitant]
  6. METFORMIN HYDROCHLORIDE [Suspect]
     Indication: TYPE 2 DIABETES MELLITUS
     Dosage: 500MG BID PO CHRONIC
     Route: 048
  7. NITROGLYCERIN [Concomitant]
  8. TRAZODONE HYDROCHLORIDE [Concomitant]
  9. ASPIRIN [Concomitant]
  10. LASIX [Concomitant]
  11. ISOSORBIDE DINITRATE [Concomitant]
  12. PRAVACHOL [Concomitant]
  13. TOPROL-XL [Concomitant]
  14. VIT D3 [Concomitant]

REACTIONS (1)
  - HYPOGLYCAEMIA [None]
